FAERS Safety Report 6846236-1 (Version None)
Quarter: 2010Q3

REPORT INFORMATION
  Report Type: 
  Country: None (occurrence: None)
  Receive Date: 20100715
  Receipt Date: 20070917
  Transmission Date: 20110219
  Serious: No
  Sender: FDA-Public Use
  Company Number: US-PFIZER INC-2007078131

PATIENT
  Sex: Female
  Weight: 60.909 kg

DRUGS (11)
  1. CHANTIX [Suspect]
     Indication: SMOKING CESSATION THERAPY
     Route: 048
     Dates: start: 20070914, end: 20070917
  2. VYTORIN [Concomitant]
  3. PROTONIX [Concomitant]
  4. ALTACE [Concomitant]
  5. HYDROCHLOROTHIAZIDE [Concomitant]
  6. METOPROLOL [Concomitant]
  7. HYDROCODONE [Concomitant]
  8. REGLAN [Concomitant]
  9. CEPHALEXIN [Concomitant]
  10. AMBIEN [Concomitant]
  11. LORAZEPAM [Concomitant]

REACTIONS (1)
  - NAUSEA [None]
